FAERS Safety Report 12351878 (Version 2)
Quarter: 2016Q2

REPORT INFORMATION
  Report Type: Spontaneous
  Country: US (occurrence: US)
  Receive Date: 20160510
  Receipt Date: 20160526
  Transmission Date: 20160815
  Serious: No
  Sender: FDA-Public Use
  Company Number: US-PFIZER INC-2016221877

PATIENT
  Age: 70 Year
  Sex: Female

DRUGS (1)
  1. PRISTIQ EXTENDED-RELEASE [Suspect]
     Active Substance: DESVENLAFAXINE SUCCINATE
     Indication: URINARY INCONTINENCE
     Dosage: UNK
     Route: 048

REACTIONS (6)
  - Nausea [Unknown]
  - Screaming [Unknown]
  - Nightmare [Unknown]
  - Product use issue [Unknown]
  - Decreased appetite [Unknown]
  - Limb discomfort [Unknown]
